FAERS Safety Report 4555427-4 (Version None)
Quarter: 2005Q1

REPORT INFORMATION
  Report Type: 
  Country: None (occurrence: None)
  Receive Date: 20050118
  Receipt Date: 20050118
  Transmission Date: 20050727
  Serious: Yes (Life-Threatening)
  Sender: FDA-Public Use
  Company Number: None

PATIENT
  Age: 61 Year
  Sex: Female
  Weight: 108.8633 kg

DRUGS (3)
  1. PREVPAC [Suspect]
     Indication: HELICOBACTER INFECTION
     Dosage: 2 X A DAY  14 DAYS ORAL
     Route: 048
     Dates: start: 20040301, end: 20040315
  2. LORAZEPAM [Concomitant]
  3. MELLARIL [Concomitant]

REACTIONS (18)
  - ANOREXIA [None]
  - ASTHENIA [None]
  - CHROMATURIA [None]
  - CONFUSIONAL STATE [None]
  - DEHYDRATION [None]
  - DIARRHOEA [None]
  - DIVERTICULITIS [None]
  - DIZZINESS [None]
  - FALL [None]
  - GASTROINTESTINAL DISORDER [None]
  - GROIN PAIN [None]
  - HAEMATOCHEZIA [None]
  - HEAD INJURY [None]
  - IMPAIRED SELF-CARE [None]
  - LOSS OF CONSCIOUSNESS [None]
  - PELVIC PAIN [None]
  - ULCER [None]
  - WEIGHT DECREASED [None]
